FAERS Safety Report 26128939 (Version 1)
Quarter: 2025Q4

REPORT INFORMATION
  Report Type: Spontaneous
  Country: US (occurrence: US)
  Receive Date: 20251208
  Receipt Date: 20251208
  Transmission Date: 20260118
  Serious: Yes (Hospitalization, Other)
  Sender: ALEMBIC
  Company Number: US-ALEMBIC PHARMACUETICALS LIMITED-2025SCAL001550

PATIENT

DRUGS (1)
  1. CYCLOPHOSPHAMIDE [Suspect]
     Active Substance: CYCLOPHOSPHAMIDE
     Indication: Prophylaxis against graft versus host disease
     Dosage: UNK
     Route: 065

REACTIONS (11)
  - Hypomania [Recovered/Resolved]
  - Psychomotor hyperactivity [Recovered/Resolved]
  - Pressure of speech [Recovered/Resolved]
  - Distractibility [Recovered/Resolved]
  - Tachyphrenia [Recovered/Resolved]
  - Grandiosity [Recovered/Resolved]
  - Insomnia [Recovered/Resolved]
  - Tangentiality [Recovered/Resolved]
  - Neurotoxicity [Recovered/Resolved]
  - Euphoric mood [Recovered/Resolved]
  - Behaviour disorder [Recovered/Resolved]
